FAERS Safety Report 20500705 (Version 3)
Quarter: 2022Q1

REPORT INFORMATION
  Report Type: Spontaneous
  Country: US (occurrence: US)
  Receive Date: 20220222
  Receipt Date: 20220325
  Transmission Date: 20220423
  Serious: Yes (Other)
  Sender: FDA-Public Use
  Company Number: US-AMGEN-USASP2022026268

PATIENT
  Age: 74 Year
  Sex: Female

DRUGS (1)
  1. PROLIA [Suspect]
     Active Substance: DENOSUMAB
     Indication: Product used for unknown indication
     Dosage: UNK
     Route: 065
     Dates: start: 201911

REACTIONS (5)
  - Exostosis [Unknown]
  - Condition aggravated [Unknown]
  - Gastrointestinal disorder [Not Recovered/Not Resolved]
  - Peripheral swelling [Unknown]
  - Swelling [Unknown]
